FAERS Safety Report 5939643-2 (Version None)
Quarter: 2008Q4

REPORT INFORMATION
  Report Type: 
  Country: None (occurrence: None)
  Receive Date: 20081030
  Receipt Date: 20081030
  Transmission Date: 20090506
  Serious: Yes (Hospitalization)
  Sender: FDA-Public Use
  Company Number: None

PATIENT
  Age: 81 Year
  Sex: Female
  Weight: 51.7101 kg

DRUGS (2)
  1. CIPRO [Suspect]
     Indication: DIVERTICULITIS
     Dosage: 500MG BID PO
     Route: 048
  2. FLAGYL [Suspect]
     Indication: DIVERTICULITIS
     Dosage: 500 MG QID PO
     Route: 048

REACTIONS (4)
  - ASTHENIA [None]
  - DEHYDRATION [None]
  - NAUSEA [None]
  - VOMITING [None]
